FAERS Safety Report 13397225 (Version 2)
Quarter: 2017Q2

REPORT INFORMATION
  Report Type: Spontaneous
  Country: CA (occurrence: CA)
  Receive Date: 20170403
  Receipt Date: 20170425
  Transmission Date: 20170830
  Serious: Yes (Other)
  Sender: FDA-Public Use
  Company Number: CA-ASTELLAS-2017US012681

PATIENT
  Age: 67 Year
  Sex: Male

DRUGS (2)
  1. PROGRAF [Suspect]
     Active Substance: TACROLIMUS\TACROLIMUS ANHYDROUS
     Indication: LIVER TRANSPLANT
     Dosage: 7.5 MG - 8 MG, ONCE DAILY
     Route: 065
  2. PROGRAF [Suspect]
     Active Substance: TACROLIMUS\TACROLIMUS ANHYDROUS
     Dosage: UNK, UNKNOWN FREQ.
     Route: 065
     Dates: start: 20170123

REACTIONS (2)
  - Blood creatinine increased [Recovered/Resolved]
  - Renal transplant [Unknown]
